FAERS Safety Report 9690961 (Version 2)
Quarter: 2013Q4

REPORT INFORMATION
  Report Type: Spontaneous
  Country: AR (occurrence: AR)
  Receive Date: 20131115
  Receipt Date: 20131128
  Transmission Date: 20140711
  Serious: Yes (Hospitalization, Other)
  Sender: FDA-Public Use
  Company Number: AR-AMGEN-ARGSP2013080386

PATIENT
  Age: 66 Year
  Sex: Female

DRUGS (2)
  1. ENBREL [Suspect]
     Indication: RHEUMATOID ARTHRITIS
     Dosage: 50 MG, WEEKLY
     Route: 065
     Dates: start: 20120410
  2. LEVOTHYROXINE [Concomitant]
     Dosage: UNK

REACTIONS (3)
  - Varicose ulceration [Recovering/Resolving]
  - Pulmonary fibrosis [Not Recovered/Not Resolved]
  - Wound infection [Recovering/Resolving]
